FAERS Safety Report 9152299 (Version 1)
Quarter: 2013Q1

REPORT INFORMATION
  Report Type: Spontaneous
  Country: US (occurrence: US)
  Receive Date: 20130308
  Receipt Date: 20130308
  Transmission Date: 20140127
  Serious: No
  Sender: FDA-Public Use
  Company Number: US-ASTRAZENECA-2013SE12568

PATIENT
  Age: 70 Year
  Sex: Female

DRUGS (3)
  1. SEROQUEL [Suspect]
     Indication: SLEEP DISORDER
     Route: 048
  2. KEPPRA [Concomitant]
  3. SIMVASTATIN [Concomitant]

REACTIONS (5)
  - Abasia [Recovering/Resolving]
  - Delusional perception [Recovering/Resolving]
  - Paranoia [Recovering/Resolving]
  - Dry mouth [Recovering/Resolving]
  - Off label use [Unknown]
